FAERS Safety Report 8196271-9 (Version None)
Quarter: 2012Q1

REPORT INFORMATION
  Report Type: 
  Country: None (occurrence: None)
  Receive Date: 20120309
  Receipt Date: 20120306
  Transmission Date: 20120608
  Serious: No
  Sender: FDA-Public Use
  Company Number: US-PFIZER INC-2012061275

PATIENT
  Sex: Female
  Weight: 53.061 kg

DRUGS (3)
  1. ALBUTEROL SULFATE [Concomitant]
     Indication: DYSPNOEA
     Dosage: UNK, AS NEEDED
  2. CLARINEX [Concomitant]
     Indication: HYPERSENSITIVITY
     Dosage: UNK,DAILY
  3. CHANTIX [Suspect]
     Indication: SMOKING CESSATION THERAPY
     Dosage: UNK
     Route: 048
     Dates: start: 20100101

REACTIONS (2)
  - STRESS [None]
  - IRRITABILITY [None]
